FAERS Safety Report 10355190 (Version 1)
Quarter: 2014Q3

REPORT INFORMATION
  Report Type: Spontaneous
  Country: US (occurrence: US)
  Receive Date: 20140731
  Receipt Date: 20140731
  Transmission Date: 20150326
  Serious: Yes (Death, Hospitalization)
  Sender: FDA-Public Use
  Company Number: US-B.I. PHARMACEUTICALS,INC./RIDGEFIELD-2014-BI-34354BP

PATIENT
  Age: 77 Year
  Sex: Male
  Weight: 86.6 kg

DRUGS (13)
  1. NOVULIN N [Concomitant]
     Dosage: 20 ANZ
     Route: 058
  2. PRINIVIL [Concomitant]
     Active Substance: LISINOPRIL
     Dosage: 5 MG
     Route: 048
  3. KLOR-CON [Concomitant]
     Active Substance: POTASSIUM CHLORIDE
     Route: 065
  4. PROVENTIL [Concomitant]
     Active Substance: ALBUTEROL
     Dosage: 8 PUF
     Route: 065
  5. KLOR-CON [Concomitant]
     Active Substance: POTASSIUM CHLORIDE
     Dosage: 8 MEQ
     Route: 065
  6. ZOCOR [Concomitant]
     Active Substance: SIMVASTATIN
     Dosage: 20 MG
     Route: 048
  7. PRADAXA [Suspect]
     Active Substance: DABIGATRAN ETEXILATE MESYLATE
     Indication: ATRIAL FIBRILLATION
     Dosage: 2 ANZ
     Route: 048
  8. REGULAR INSULIN [Concomitant]
     Active Substance: INSULIN NOS
     Dosage: 20 ANZ
     Route: 065
  9. HYDROCHOROTHIAZIDE [Concomitant]
     Dosage: 1 ANZ
     Route: 048
  10. PAXIL [Concomitant]
     Active Substance: PAROXETINE HYDROCHLORIDE
     Dosage: 20 MG
     Route: 048
  11. LANOXIN [Concomitant]
     Active Substance: DIGOXIN
     Dosage: 0.125 MG
     Route: 048
  12. GLUCOTROL [Concomitant]
     Active Substance: GLIPIZIDE
     Dosage: 20 MG
     Route: 048
  13. FORADIL [Concomitant]
     Active Substance: FORMOTEROL FUMARATE
     Route: 065

REACTIONS (5)
  - Multi-organ failure [Fatal]
  - Coagulopathy [Fatal]
  - Intestinal perforation [Fatal]
  - Septic shock [Fatal]
  - Lower gastrointestinal haemorrhage [Unknown]

NARRATIVE: CASE EVENT DATE: 20120812
